FAERS Safety Report 7606931-3 (Version None)
Quarter: 2011Q3

REPORT INFORMATION
  Report Type: 
  Country: None (occurrence: None)
  Receive Date: 20110713
  Receipt Date: 20110628
  Transmission Date: 20111222
  Serious: Yes (Death)
  Sender: FDA-Public Use
  Company Number: US-PFIZER INC-2011158148

PATIENT
  Age: 28 Year
  Sex: Male

DRUGS (4)
  1. PAROXETINE HCL [Suspect]
     Dosage: UNK
     Dates: end: 20070101
  2. TRIHEXYPHENIDYL [Suspect]
     Dosage: UNK
     Dates: end: 20070101
  3. METHAMPHETAMINE [Suspect]
     Dosage: UNK
     Dates: end: 20070101
  4. VALPROIC ACID [Suspect]
     Dosage: UNK
     Dates: end: 20070101

REACTIONS (4)
  - DEATH [None]
  - CARDIAC ARREST [None]
  - INTENTIONAL DRUG MISUSE [None]
  - RESPIRATORY ARREST [None]
